FAERS Safety Report 8228191-5 (Version None)
Quarter: 2012Q1

REPORT INFORMATION
  Report Type: 
  Country: None (occurrence: None)
  Receive Date: 20120322
  Receipt Date: 20120314
  Transmission Date: 20120608
  Serious: Yes (Hospitalization, Congenital Anomaly, Other)
  Sender: FDA-Public Use
  Company Number: US-JNJFOC-20111109043

PATIENT
  Sex: Female

DRUGS (10)
  1. TOPAMAX [Suspect]
     Indication: FOETAL EXPOSURE DURING PREGNANCY
     Route: 064
     Dates: start: 20010101, end: 20070101
  2. LITHIUM CARBONATE [Suspect]
     Indication: FOETAL EXPOSURE DURING PREGNANCY
     Route: 064
  3. TERBUTALINE [Suspect]
     Indication: FOETAL EXPOSURE DURING PREGNANCY
     Route: 064
  4. LEXAPRO [Suspect]
     Indication: FOETAL EXPOSURE DURING PREGNANCY
     Route: 064
  5. ZITHROMAX [Suspect]
     Indication: FOETAL EXPOSURE DURING PREGNANCY
     Route: 064
  6. PROMETRIUM [Suspect]
     Indication: FOETAL EXPOSURE DURING PREGNANCY
     Route: 064
  7. NIFEDIPINE [Suspect]
     Indication: FOETAL EXPOSURE DURING PREGNANCY
     Route: 064
  8. BETAMETHASONE [Suspect]
     Indication: FOETAL EXPOSURE DURING PREGNANCY
     Route: 064
  9. CLINDAMYCIN [Suspect]
     Indication: FOETAL EXPOSURE DURING PREGNANCY
     Route: 064
  10. AMPICILLIN [Suspect]
     Indication: FOETAL EXPOSURE DURING PREGNANCY
     Route: 064

REACTIONS (19)
  - DEVELOPMENTAL DELAY [None]
  - MALOCCLUSION [None]
  - NASAL SEPTUM DEVIATION [None]
  - ATTENTION DEFICIT/HYPERACTIVITY DISORDER [None]
  - GASTROOESOPHAGEAL REFLUX DISEASE [None]
  - INTRAVENTRICULAR HAEMORRHAGE NEONATAL [None]
  - RETINOPATHY OF PREMATURITY [None]
  - PREMATURE BABY [None]
  - APGAR SCORE LOW [None]
  - ENLARGED CLITORIS [None]
  - LUNG DISORDER [None]
  - CONGENITAL CENTRAL NERVOUS SYSTEM ANOMALY [None]
  - EMOTIONAL DISORDER [None]
  - BRONCHOPULMONARY DYSPLASIA [None]
  - STRABISMUS [None]
  - SEPSIS [None]
  - CLEFT LIP AND PALATE [None]
  - PATENT DUCTUS ARTERIOSUS [None]
  - SLEEP APNOEA SYNDROME [None]
